FAERS Safety Report 21273587 (Version 1)
Quarter: 2022Q3

REPORT INFORMATION
  Report Type: Spontaneous
  Country: PT (occurrence: PT)
  Receive Date: 20220831
  Receipt Date: 20220831
  Transmission Date: 20221027
  Serious: Yes (Other)
  Sender: FDA-Public Use
  Company Number: None

PATIENT
  Age: 6 Month
  Sex: Male
  Weight: 7.3 kg

DRUGS (2)
  1. ZOLGENSMA [Suspect]
     Active Substance: ONASEMNOGENE ABEPARVOVEC-XIOI
     Indication: Spinal muscular atrophy
     Dosage: UNK UNK, ONCE/SINGLE (TOMA UNICA (8,3 ? 10^14 GENOMAS DO VETOR = 41,3 ML))
     Route: 042
     Dates: start: 20200813, end: 20200813
  2. PREDNISOLONE [Concomitant]
     Active Substance: PREDNISOLONE
     Indication: Immunomodulatory therapy
     Dosage: 1 MG/KG, QD
     Route: 065

REACTIONS (5)
  - Anaemia [Recovered/Resolved]
  - Vomiting [Recovered/Resolved]
  - Aspartate aminotransferase increased [Recovered/Resolved]
  - Platelet count decreased [Recovered/Resolved]
  - Alanine aminotransferase increased [Recovered/Resolved]

NARRATIVE: CASE EVENT DATE: 20200814
